FAERS Safety Report 6622310-X (Version None)
Quarter: 2010Q1

REPORT INFORMATION
  Report Type: 
  Country: None (occurrence: None)
  Receive Date: 20100310
  Receipt Date: 20100304
  Transmission Date: 20100710
  Serious: Yes (Other)
  Sender: FDA-Public Use
  Company Number: US-WYE-H12862910

PATIENT
  Age: 68 Year
  Sex: Female
  Weight: 66.36 kg

DRUGS (1)
  1. TORISEL [Suspect]
     Indication: ENDOMETRIAL CANCER
     Route: 042
     Dates: start: 20090423, end: 20091119

REACTIONS (1)
  - HYPOMAGNESAEMIA [None]
